FAERS Safety Report 8484031-0 (Version None)
Quarter: 2012Q2

REPORT INFORMATION
  Report Type: 
  Country: None (occurrence: None)
  Receive Date: 20120627
  Receipt Date: 20120627
  Transmission Date: 20120825
  Serious: Yes (Hospitalization)
  Sender: FDA-Public Use
  Company Number: None

PATIENT
  Sex: Female

DRUGS (1)
  1. HEPSERA [Suspect]
     Indication: HEPATITIS B
     Dosage: ORAL 1 DAILY
     Dates: start: 20120531, end: 20120626

REACTIONS (5)
  - ABDOMINAL DISTENSION [None]
  - PRODUCT SUBSTITUTION ISSUE [None]
  - MUSCLE SPASMS [None]
  - VIRAL INFECTION [None]
  - ABDOMINAL PAIN [None]
